FAERS Safety Report 5128462-5 (Version None)
Quarter: 2006Q4

REPORT INFORMATION
  Report Type: 
  Country: None (occurrence: None)
  Receive Date: 20061017
  Receipt Date: 20060405
  Transmission Date: 20070319
  Serious: Yes (Hospitalization)
  Sender: FDA-Public Use
  Company Number: US-ROCHE-443601

PATIENT
  Age: 15 Year
  Sex: Male
  Weight: 81.6 kg

DRUGS (1)
  1. ACCUTANE [Suspect]
     Route: 048
     Dates: start: 19960227, end: 19960718

REACTIONS (6)
  - AMOEBIC DYSENTERY [None]
  - COLITIS ULCERATIVE [None]
  - DRY SKIN [None]
  - INFLAMMATORY BOWEL DISEASE [None]
  - INJURY [None]
  - VIRAL INFECTION [None]
